FAERS Safety Report 13892380 (Version 1)
Quarter: 2017Q3

REPORT INFORMATION
  Report Type: Spontaneous
  Country: US (occurrence: US)
  Receive Date: 20170822
  Receipt Date: 20170822
  Transmission Date: 20171127
  Serious: No
  Sender: FDA-Public Use
  Company Number: US-ROCHE-770400

PATIENT
  Sex: Female

DRUGS (1)
  1. ACTEMRA [Suspect]
     Active Substance: TOCILIZUMAB
     Indication: RHEUMATOID ARTHRITIS
     Dosage: DOSAGE FORM METIONED AS INFUSION
     Route: 042
     Dates: start: 2010, end: 201011

REACTIONS (3)
  - Diarrhoea [Unknown]
  - Mouth ulceration [Unknown]
  - Drug ineffective [Unknown]
